FAERS Safety Report 20735401 (Version 4)
Quarter: 2022Q3

REPORT INFORMATION
  Report Type: Spontaneous
  Country: CN (occurrence: CN)
  Receive Date: 20220421
  Receipt Date: 20220705
  Transmission Date: 20221027
  Serious: Yes (Other)
  Sender: FDA-Public Use
  Company Number: CN-GLAXOSMITHKLINE-CN2022APC065797

PATIENT

DRUGS (1)
  1. SERETIDE [Suspect]
     Active Substance: FLUTICASONE PROPIONATE\SALMETEROL XINAFOATE
     Indication: Product used for unknown indication
     Dosage: UNK, 50/250UG 60 INHALATIONS
     Route: 055

REACTIONS (8)
  - Myocardial infarction [Unknown]
  - Agitation [Unknown]
  - Anger [Unknown]
  - Wrong technique in device usage process [Unknown]
  - Underdose [Unknown]
  - Product packaging quantity issue [Unknown]
  - Extra dose administered [Unknown]
  - Product complaint [Unknown]

NARRATIVE: CASE EVENT DATE: 20220415
